FAERS Safety Report 7576293-9 (Version None)
Quarter: 2011Q2

REPORT INFORMATION
  Report Type: 
  Country: None (occurrence: None)
  Receive Date: 20110623
  Receipt Date: 20110623
  Transmission Date: 20111010
  Serious: No
  Sender: FDA-Public Use
  Company Number: None

PATIENT
  Age: 29 Year
  Sex: Female

DRUGS (1)
  1. MINOCYCLINE HCL [Suspect]
     Dates: start: 20080701, end: 20090703

REACTIONS (3)
  - HEPATITIS [None]
  - CONSTIPATION [None]
  - LIVER DISORDER [None]
